FAERS Safety Report 8005168-6 (Version None)
Quarter: 2011Q4

REPORT INFORMATION
  Report Type: 
  Country: None (occurrence: None)
  Receive Date: 20111223
  Receipt Date: 20111219
  Transmission Date: 20120403
  Serious: Yes (Life-Threatening)
  Sender: FDA-Public Use
  Company Number: PHEH2011US012062

PATIENT
  Sex: Female
  Weight: 163.4 kg

DRUGS (8)
  1. EXJADE [Suspect]
     Dosage: 2000 MG, DAILY
     Route: 048
  2. EXJADE [Suspect]
     Indication: IRON OVERLOAD
     Dosage: 2000 MG, DAILY
     Route: 048
     Dates: start: 20100324, end: 20110823
  3. ATG                                     /BEL/ [Concomitant]
     Indication: APLASTIC ANAEMIA
  4. COMPAZINE [Concomitant]
  5. MYCOPHENOLATE MOFETIL (CELLCEPT) [Concomitant]
     Indication: APLASTIC ANAEMIA
  6. ATGAM [Concomitant]
     Indication: APLASTIC ANAEMIA
  7. CYCLOSPORINE [Concomitant]
     Indication: APLASTIC ANAEMIA
  8. IMMUNOSUPPRESSANTS [Concomitant]

REACTIONS (6)
  - THROMBOSIS [None]
  - HAEMORRHAGE INTRACRANIAL [None]
  - PAROXYSMAL NOCTURNAL HAEMOGLOBINURIA [None]
  - INTRACRANIAL HAEMATOMA [None]
  - HEADACHE [None]
  - MIGRAINE [None]
